FAERS Safety Report 17557398 (Version 1)
Quarter: 2020Q1

REPORT INFORMATION
  Report Type: Spontaneous
  Country: JP (occurrence: JP)
  Receive Date: 20200318
  Receipt Date: 20200318
  Transmission Date: 20200409
  Serious: Yes (Hospitalization)
  Sender: FDA-Public Use
  Company Number: JP-BEH-2020113110

PATIENT
  Age: 5 Year
  Sex: Male

DRUGS (2)
  1. ALBUMINAR-5 [Suspect]
     Active Substance: ALBUMIN HUMAN
     Indication: PULMONARY OEDEMA
     Dosage: 5 MILLILITER
     Route: 042
     Dates: start: 20200206, end: 20200206
  2. ALBUMINAR-5 [Suspect]
     Active Substance: ALBUMIN HUMAN
     Indication: OEDEMA

REACTIONS (2)
  - Rash [Unknown]
  - Urticaria [Unknown]

NARRATIVE: CASE EVENT DATE: 20200206
